FAERS Safety Report 7419454-1 (Version None)
Quarter: 2011Q2

REPORT INFORMATION
  Report Type: 
  Country: None (occurrence: None)
  Receive Date: 20110413
  Receipt Date: 20110413
  Transmission Date: 20111010
  Serious: Yes (Other)
  Sender: FDA-Public Use
  Company Number: None

PATIENT
  Age: 21 Year
  Sex: Male
  Weight: 62.3 kg

DRUGS (5)
  1. CLONAZEPAM [Concomitant]
  2. LAMICTAL [Concomitant]
  3. TRAZODONE [Concomitant]
  4. CYMBALTA [Suspect]
     Indication: ANXIETY DISORDER
     Dosage: 120MG QD ORAL
     Route: 048
     Dates: start: 20100701
  5. CYMBALTA [Suspect]
     Indication: ANXIETY DISORDER
     Dosage: 120MG QD ORAL
     Route: 048
     Dates: start: 20110401

REACTIONS (12)
  - HEADACHE [None]
  - NAUSEA [None]
  - FATIGUE [None]
  - DEPRESSION [None]
  - INSOMNIA [None]
  - SYNCOPE [None]
  - ANXIETY [None]
  - AGITATION [None]
  - PARAESTHESIA [None]
  - DRUG EFFECT DECREASED [None]
  - WITHDRAWAL SYNDROME [None]
  - IRRITABILITY [None]
